FAERS Safety Report 9329031 (Version 1)
Quarter: 2013Q2

REPORT INFORMATION
  Report Type: Spontaneous
  Country: US (occurrence: US)
  Receive Date: 20130604
  Receipt Date: 20130604
  Transmission Date: 20140414
  Serious: Yes (Other)
  Sender: FDA-Public Use
  Company Number: US-SANOFI-AVENTIS-2013SA041753

PATIENT
  Age: 60 Year
  Sex: Female

DRUGS (3)
  1. LANTUS SOLOSTAR [Suspect]
     Indication: TYPE 1 DIABETES MELLITUS
     Dosage: DOSE:46 UNIT(S)
     Route: 051
     Dates: start: 201212
  2. SOLOSTAR [Suspect]
     Indication: TYPE 1 DIABETES MELLITUS
     Dates: start: 201212
  3. GLUCOPHAGE [Concomitant]

REACTIONS (6)
  - Weight increased [Unknown]
  - Rash [Unknown]
  - Decreased appetite [Unknown]
  - Dyspnoea [Unknown]
  - Injection site discolouration [Unknown]
  - Injection site pruritus [Unknown]
